FAERS Safety Report 13593782 (Version 1)
Quarter: 2017Q2

REPORT INFORMATION
  Report Type: Report from Study
  Country: PL (occurrence: PL)
  Receive Date: 20170530
  Receipt Date: 20170530
  Transmission Date: 20170830
  Serious: Yes (Other)
  Sender: FDA-Public Use
  Company Number: PL-BIOGEN-2017BI00408918

PATIENT
  Age: 35 Year
  Sex: Female

DRUGS (6)
  1. AVONEX [Suspect]
     Active Substance: INTERFERON BETA-1A
     Indication: MULTIPLE SCLEROSIS
     Route: 030
     Dates: start: 20141124, end: 20150704
  2. BI-ARYL OXADIAZOLE OZANIMOD [Concomitant]
     Route: 048
     Dates: end: 20150706
  3. BI-ARYL OXADIAZOLE OZANIMOD [Concomitant]
     Indication: MULTIPLE SCLEROSIS
     Route: 048
     Dates: start: 20141124, end: 20141127
  4. BI-ARYL OXADIAZOLE OZANIMOD [Concomitant]
     Route: 048
     Dates: start: 20141201, end: 20150724
  5. BI-ARYL OXADIAZOLE OZANIMOD [Concomitant]
     Route: 048
     Dates: start: 20141128, end: 20141130
  6. IBUPROFEN. [Concomitant]
     Active Substance: IBUPROFEN
     Indication: INFLUENZA LIKE ILLNESS
     Route: 065

REACTIONS (1)
  - Malignant melanoma in situ [Recovered/Resolved]

NARRATIVE: CASE EVENT DATE: 20150706
